FAERS Safety Report 5060993-9 (Version None)
Quarter: 2006Q3

REPORT INFORMATION
  Report Type: 
  Country: None (occurrence: None)
  Receive Date: 20060725
  Receipt Date: 20060621
  Transmission Date: 20061208
  Serious: Yes (Hospitalization)
  Sender: FDA-Public Use
  Company Number: PHRM2006FR01885

PATIENT
  Age: 59 Year
  Sex: Male
  Weight: 68 kg

DRUGS (1)
  1. GLEEVEC [Suspect]
     Indication: CHRONIC MYELOID LEUKAEMIA
     Dosage: 400 MG DAILY
     Route: 048
     Dates: start: 20010801

REACTIONS (3)
  - BREAST CANCER RECURRENT [None]
  - MASTECTOMY [None]
  - METASTASES TO BONE [None]
